FAERS Safety Report 4865216-9 (Version None)
Quarter: 2005Q4

REPORT INFORMATION
  Report Type: 
  Country: None (occurrence: None)
  Receive Date: 20051223
  Receipt Date: 20051217
  Transmission Date: 20060501
  Serious: Yes (Other)
  Sender: FDA-Public Use
  Company Number: AG2461

PATIENT
  Age: 57 Year
  Sex: Female

DRUGS (6)
  1. LAMOTRIGINE [Suspect]
     Route: 065
     Dates: start: 20040201, end: 20040401
  2. VALPROATE SODIUM [Suspect]
     Indication: CONVULSION
     Dosage: 2400MG PER DAY
     Route: 065
  3. CLOBAZAM [Concomitant]
     Indication: CONVULSION
     Dosage: 10MG PER DAY
     Route: 065
  4. PARACETAMOL [Concomitant]
     Dosage: 4G PER DAY
     Route: 065
  5. LOPERAMIDE [Concomitant]
     Route: 065
  6. ECZEMA MEDICATION [Concomitant]

REACTIONS (6)
  - CYANOSIS [None]
  - DYSPNOEA [None]
  - MALAISE [None]
  - OXYGEN SATURATION DECREASED [None]
  - PNEUMONITIS [None]
  - TACHYCARDIA [None]
